FAERS Safety Report 5447402-2 (Version None)
Quarter: 2007Q3

REPORT INFORMATION
  Report Type: 
  Country: None (occurrence: None)
  Receive Date: 20070905
  Receipt Date: 20070905
  Transmission Date: 20080115
  Serious: No
  Sender: FDA-Public Use
  Company Number: None

PATIENT
  Age: 54 Year
  Sex: Female
  Weight: 113.3993 kg

DRUGS (1)
  1. LEVAQUIN [Suspect]
     Indication: SINUSITIS
     Dosage: 750 MG  QD  PO
     Route: 048
     Dates: start: 20070822, end: 20070827

REACTIONS (22)
  - ARTHRALGIA [None]
  - ASTHENIA [None]
  - CHILLS [None]
  - COLD SWEAT [None]
  - DISCOMFORT [None]
  - FATIGUE [None]
  - FEELING OF BODY TEMPERATURE CHANGE [None]
  - FLUSHING [None]
  - HYPERHIDROSIS [None]
  - INSOMNIA [None]
  - MUSCULOSKELETAL PAIN [None]
  - PAIN [None]
  - PAIN IN EXTREMITY [None]
  - PARAESTHESIA [None]
  - PERIPHERAL COLDNESS [None]
  - PRURITUS [None]
  - PYREXIA [None]
  - RASH ERYTHEMATOUS [None]
  - RESTLESSNESS [None]
  - SENSATION OF HEAVINESS [None]
  - TENDON DISORDER [None]
  - TREMOR [None]
